FAERS Safety Report 8215853 (Version 7)
Quarter: 2012Q4

REPORT INFORMATION
  Report Type: 
  Country: US (occurrence: US)
  Receive Date: 20111031
  Receipt Date: 20121106
  Transmission Date: 20130627
  Serious: Yes (Death)
  Sender: FDA-Public Use
  Company Number: US-MYLANLABS-2011S1021926

PATIENT
  Age: 49 Year
  Sex: Female
  Weight: 77.11 kg

DRUGS (16)
  1. FENTANYL TRANSDERMAL SYSTEM [Suspect]
     Indication: PAIN
     Dosage: Change q3d
     Route: 062
     Dates: end: 20100312
  2. LEXAPRO [Concomitant]
     Route: 048
  3. OXYCODONE [Concomitant]
     Dosage: 1 - 1.5 prn
  4. NEURONTIN [Concomitant]
  5. TIZANIDINE [Concomitant]
     Dosage: 2mg tabs take 1 + 1/2 TID and (3) HS
  6. NUVIGIL [Concomitant]
  7. MIRALAX /00754501/ [Concomitant]
  8. ATACAND [Concomitant]
  9. COPAXONE [Concomitant]
  10. TIMOLOL [Concomitant]
     Route: 047
  11. TRAVATAN [Concomitant]
     Route: 047
  12. CLONAZEPAM [Concomitant]
  13. VITAMIN C [Concomitant]
  14. VITAMIN E [Concomitant]
  15. MAGNESIUM OXIDE [Concomitant]
  16. MULTIVITAMIN [Concomitant]

REACTIONS (3)
  - Toxicity to various agents [Fatal]
  - Overdose [Fatal]
  - Incorrect dose administered by device [None]
